FAERS Safety Report 5217230-1 (Version None)
Quarter: 2007Q1

REPORT INFORMATION
  Report Type: 
  Country: None (occurrence: None)
  Receive Date: 20070122
  Receipt Date: 20070122
  Transmission Date: 20070707
  Serious: Yes (Hospitalization)
  Sender: FDA-Public Use
  Company Number: None

PATIENT
  Age: 56 Year
  Sex: Male
  Weight: 76.6579 kg

DRUGS (1)
  1. DIDANOSINE [Suspect]
     Dosage: 250 MG PO QD
     Route: 048

REACTIONS (2)
  - DECREASED APPETITE [None]
  - PANCREATITIS ACUTE [None]
